FAERS Safety Report 11008015 (Version 2)
Quarter: 2015Q3

REPORT INFORMATION
  Report Type: Report from Study
  Country: US (occurrence: US)
  Receive Date: 20150410
  Receipt Date: 20150810
  Transmission Date: 20151125
  Serious: Yes (Hospitalization, Other)
  Sender: FDA-Public Use
  Company Number: US-ROCHE-1562194

PATIENT
  Age: 60 Year
  Sex: Female

DRUGS (34)
  1. RANIBIZUMAB [Suspect]
     Active Substance: RANIBIZUMAB
     Indication: DIABETIC RETINAL OEDEMA
     Dosage: EYE-OD
     Route: 050
     Dates: start: 20130611
  2. RANIBIZUMAB [Suspect]
     Active Substance: RANIBIZUMAB
     Dosage: EYE-OD
     Route: 065
     Dates: start: 20131231
  3. RANIBIZUMAB [Suspect]
     Active Substance: RANIBIZUMAB
     Dosage: EYE-OD
     Route: 065
     Dates: start: 20140708
  4. RANIBIZUMAB [Suspect]
     Active Substance: RANIBIZUMAB
     Dosage: EYE-OD
     Route: 065
     Dates: start: 20140808
  5. SULFADIAZINE. [Concomitant]
     Active Substance: SULFADIAZINE
     Route: 048
     Dates: start: 20130926
  6. LISINOPRIL. [Concomitant]
     Active Substance: LISINOPRIL
     Route: 048
     Dates: start: 20140107
  7. RANIBIZUMAB [Suspect]
     Active Substance: RANIBIZUMAB
     Dosage: EYE-OD AND OS
     Route: 065
     Dates: start: 20140324
  8. RANIBIZUMAB [Suspect]
     Active Substance: RANIBIZUMAB
     Dosage: EYE-OD AND OS
     Route: 065
     Dates: start: 20150513
  9. RANIBIZUMAB [Suspect]
     Active Substance: RANIBIZUMAB
     Dosage: EYE-OD AND OS
     Route: 065
     Dates: start: 20141203
  10. RANIBIZUMAB [Suspect]
     Active Substance: RANIBIZUMAB
     Dosage: EYE-OD AND OS
     Route: 065
     Dates: start: 20150415
  11. METFORMIN [Concomitant]
     Active Substance: METFORMIN HYDROCHLORIDE
     Route: 048
  12. CIPROFLOXACIN. [Concomitant]
     Active Substance: CIPROFLOXACIN
     Route: 048
     Dates: start: 20140107
  13. PRAVASTATIN [Concomitant]
     Active Substance: PRAVASTATIN\PRAVASTATIN SODIUM
     Route: 048
     Dates: start: 20140107
  14. IBUPROFEN. [Concomitant]
     Active Substance: IBUPROFEN
     Route: 048
     Dates: start: 20140228
  15. FLEXERIL [Concomitant]
     Active Substance: CYCLOBENZAPRINE HYDROCHLORIDE
     Route: 048
     Dates: start: 20140228
  16. RANIBIZUMAB [Suspect]
     Active Substance: RANIBIZUMAB
     Dosage: EYE-OD
     Route: 065
     Dates: start: 20141107
  17. SYNTHROID [Concomitant]
     Active Substance: LEVOTHYROXINE SODIUM
     Route: 048
     Dates: start: 20140817
  18. TRAMADOL HYDROCHLORIDE. [Concomitant]
     Active Substance: TRAMADOL HYDROCHLORIDE
     Route: 048
     Dates: start: 20140821
  19. TRAMADOL HYDROCHLORIDE. [Concomitant]
     Active Substance: TRAMADOL HYDROCHLORIDE
     Route: 048
     Dates: start: 20150326
  20. RANIBIZUMAB [Suspect]
     Active Substance: RANIBIZUMAB
     Dosage: EYE-OD
     Route: 065
     Dates: start: 20131002
  21. RANIBIZUMAB [Suspect]
     Active Substance: RANIBIZUMAB
     Dosage: EYE-OD
     Route: 065
     Dates: start: 20150204
  22. RANIBIZUMAB [Suspect]
     Active Substance: RANIBIZUMAB
     Dosage: EYE-OD AND OS
     Route: 065
     Dates: start: 20150311
  23. GLIPIZIDE. [Concomitant]
     Active Substance: GLIPIZIDE
     Route: 048
  24. LANTUS [Concomitant]
     Active Substance: INSULIN GLARGINE
     Dosage: 32/UNITS
     Route: 058
     Dates: start: 20140107
  25. RANIBIZUMAB [Suspect]
     Active Substance: RANIBIZUMAB
     Dosage: EYE-OD
     Route: 065
     Dates: start: 20130808
  26. RANIBIZUMAB [Suspect]
     Active Substance: RANIBIZUMAB
     Dosage: EYE-OD
     Route: 065
     Dates: start: 20130909
  27. RANIBIZUMAB [Suspect]
     Active Substance: RANIBIZUMAB
     Dosage: EYE-OD AND OS
     Route: 065
     Dates: start: 20140123
  28. RANIBIZUMAB [Suspect]
     Active Substance: RANIBIZUMAB
     Dosage: EYE-OD AND OS
     Route: 065
     Dates: start: 20140910
  29. RANIBIZUMAB [Suspect]
     Active Substance: RANIBIZUMAB
     Dosage: EYE-OD
     Route: 065
     Dates: start: 20141008
  30. NEURONTIN [Concomitant]
     Active Substance: GABAPENTIN
     Route: 048
     Dates: start: 20140107
  31. NORCO [Concomitant]
     Active Substance: ACETAMINOPHEN\HYDROCODONE BITARTRATE
     Dosage: 5/325/TABLET
     Route: 048
     Dates: start: 20140228
  32. RANIBIZUMAB [Suspect]
     Active Substance: RANIBIZUMAB
     Dosage: EYE-OD
     Route: 065
     Dates: start: 20130716
  33. RANIBIZUMAB [Suspect]
     Active Substance: RANIBIZUMAB
     Dosage: EYE-OD
     Route: 065
     Dates: start: 20140219
  34. RANIBIZUMAB [Suspect]
     Active Substance: RANIBIZUMAB
     Dosage: EYE-OD
     Route: 065
     Dates: start: 20140417

REACTIONS (1)
  - Cerebrovascular accident [Not Recovered/Not Resolved]

NARRATIVE: CASE EVENT DATE: 20150315
